FAERS Safety Report 21349323 (Version 3)
Quarter: 2022Q3

REPORT INFORMATION
  Report Type: Other
  Country: US (occurrence: None)
  Receive Date: 20220919
  Receipt Date: 20220922
  Transmission Date: 20221026
  Serious: Yes (Other)
  Sender: FDA-Public Use
  Company Number: US-ROCHE-3179612

PATIENT
  Sex: Female

DRUGS (8)
  1. HERCEPTIN [Suspect]
     Active Substance: TRASTUZUMAB
     Indication: Breast cancer female
     Route: 065
  2. HERCEPTIN [Suspect]
     Active Substance: TRASTUZUMAB
     Indication: Metastases to nervous system
  3. HERCEPTIN [Suspect]
     Active Substance: TRASTUZUMAB
     Indication: Breast cancer metastatic
  4. HERCEPTIN [Suspect]
     Active Substance: TRASTUZUMAB
     Indication: Metastases to central nervous system
  5. XELODA [Suspect]
     Active Substance: CAPECITABINE
     Indication: Breast cancer female
     Dosage: 50 MILLIGRAMS ADMINISTERED INTRATHECALLY EVERY WEEK AND 509 MILLIGRAMS INTRAVENOUSLY EVERY 3 WEEK(S)
     Route: 048
  6. XELODA [Suspect]
     Active Substance: CAPECITABINE
     Indication: Metastases to nervous system
     Dosage: TAKE 1950 MG (THREE 500MG AND THREE150 MG) TWICE A DAY, 14 DAYS ON + 7 DAYS OFF
     Route: 048
  7. XELODA [Suspect]
     Active Substance: CAPECITABINE
     Indication: Breast cancer metastatic
     Dosage: TAKE 1950 MG (THREE 500 MG AND THREE 150 MG) TWICE A DAY, 14 DAYS ON + 7 DAYS OFF
     Route: 048
  8. XELODA [Suspect]
     Active Substance: CAPECITABINE
     Indication: Metastases to central nervous system

REACTIONS (1)
  - Malignant neoplasm progression [Unknown]
